FAERS Safety Report 7738046-8 (Version None)
Quarter: 2011Q3

REPORT INFORMATION
  Report Type: 
  Country: None (occurrence: None)
  Receive Date: 20110908
  Receipt Date: 20110831
  Transmission Date: 20111222
  Serious: Yes (Hospitalization, Other)
  Sender: FDA-Public Use
  Company Number: US-NOVOPROD-334387

PATIENT
  Age: 52 Year
  Sex: Female
  Weight: 86.168 kg

DRUGS (2)
  1. VICTOZA [Suspect]
     Dosage: 0.6 MG, QD
     Route: 058
     Dates: start: 20110820, end: 20110820
  2. VICTOZA [Suspect]
     Indication: TYPE 2 DIABETES MELLITUS
     Dosage: 0.6 MG, QD
     Route: 058
     Dates: start: 20110801, end: 20110801

REACTIONS (8)
  - SYNCOPE [None]
  - DIARRHOEA HAEMORRHAGIC [None]
  - DEHYDRATION [None]
  - WHITE BLOOD CELL COUNT INCREASED [None]
  - ABDOMINAL PAIN [None]
  - ANAEMIA [None]
  - CLOSTRIDIAL INFECTION [None]
  - VOMITING PROJECTILE [None]
